FAERS Safety Report 9961787 (Version 1)
Quarter: 2014Q1

REPORT INFORMATION
  Report Type: Report from Study
  Country: US (occurrence: US)
  Receive Date: 20140305
  Receipt Date: 20140305
  Transmission Date: 20141002
  Serious: No
  Sender: FDA-Public Use
  Company Number: US-ABBVIE-13P-163-1111247-00

PATIENT
  Age: 54 Year
  Sex: Male

DRUGS (11)
  1. HUMIRA [Suspect]
     Indication: COLITIS ULCERATIVE
     Dates: start: 20130208, end: 20130208
  2. HUMIRA [Suspect]
  3. HUMIRA [Suspect]
  4. WELCHOL [Concomitant]
     Indication: COLITIS ULCERATIVE
     Dosage: 625 MG 2 TABS TWICE DAILY
  5. LOPERAMIDE [Concomitant]
     Indication: DIARRHOEA
     Dosage: 2 MG TABS DAILY
  6. VITAMIN D [Concomitant]
     Indication: PRODUCT USED FOR UNKNOWN INDICATION
     Dosage: 2000 UNITS 2 TABS DAILY
  7. FOLIC ACID [Concomitant]
     Indication: PRODUCT USED FOR UNKNOWN INDICATION
     Dosage: 1 MG DAILY
  8. CITALOPRAM [Concomitant]
     Indication: ANXIETY
     Dosage: 20 MG DAILY
  9. SINGULAIR [Concomitant]
     Indication: HYPERSENSITIVITY
     Dosage: 10 MG AT BEDTIME
  10. SINGULAIR [Concomitant]
     Indication: ASTHMA
  11. OVER THE COUNTER FIBER [Concomitant]
     Indication: PRODUCT USED FOR UNKNOWN INDICATION
     Dosage: COUPLE TEASPOONS DAILY

REACTIONS (2)
  - Respiratory disorder [Not Recovered/Not Resolved]
  - Drug ineffective [Not Recovered/Not Resolved]
